FAERS Safety Report 5064677-2 (Version None)
Quarter: 2006Q3

REPORT INFORMATION
  Report Type: 
  Country: None (occurrence: None)
  Receive Date: 20060728
  Receipt Date: 20060724
  Transmission Date: 20061208
  Serious: Yes (Other)
  Sender: FDA-Public Use
  Company Number: US-GLAXOSMITHKLINE-A0613327A

PATIENT
  Age: 56 Year
  Sex: Female

DRUGS (3)
  1. WELLBUTRIN XL [Suspect]
     Indication: SMOKING CESSATION THERAPY
     Dosage: 150MG PER DAY
     Route: 048
     Dates: start: 20060720
  2. VICODIN [Concomitant]
  3. MIRALAX [Concomitant]

REACTIONS (2)
  - INTESTINAL OBSTRUCTION [None]
  - VOMITING [None]
